FAERS Safety Report 21816221 (Version 1)
Quarter: 2023Q1

REPORT INFORMATION
  Report Type: Spontaneous
  Country: US (occurrence: None)
  Receive Date: 20230103
  Receipt Date: 20230103
  Transmission Date: 20230417
  Serious: Yes (Other)
  Sender: FDA-Public Use
  Company Number: None

PATIENT
  Sex: Female

DRUGS (4)
  1. HUMIRA [Suspect]
     Active Substance: ADALIMUMAB
     Dosage: OTHER QUANTITY : 40 MG/0.4ML;?
     Dates: start: 20210604
  2. EFFEXOR XR [Concomitant]
  3. PREVACID [Concomitant]
  4. VISTARIL [Concomitant]

REACTIONS (2)
  - Therapy interrupted [None]
  - Surgery [None]
